FAERS Safety Report 24869755 (Version 1)
Quarter: 2025Q1

REPORT INFORMATION
  Report Type: Spontaneous
  Country: ES (occurrence: ES)
  Receive Date: 20250121
  Receipt Date: 20250121
  Transmission Date: 20250408
  Serious: Yes (Death, Hospitalization)
  Sender: TEVA
  Company Number: None

PATIENT
  Age: 90 Year
  Sex: Male

DRUGS (2)
  1. CLOPIDOGREL [Interacting]
     Active Substance: CLOPIDOGREL BISULFATE
     Indication: Cardiac valve prosthesis user
     Dosage: 1 TABLET A DAY, CLOPIDOGREL (7300A)
     Route: 048
     Dates: start: 20241004, end: 20241219
  2. ASPIRIN [Interacting]
     Active Substance: ASPIRIN
     Indication: Cardiac valve prosthesis user
     Dosage: 1 TABLET A DAY, EFG 60 TABLETS
     Route: 048
     Dates: start: 20241004, end: 20241219

REACTIONS (1)
  - Cerebral haemorrhage [Fatal]

NARRATIVE: CASE EVENT DATE: 20241219
